FAERS Safety Report 16044604 (Version 3)
Quarter: 2025Q1

REPORT INFORMATION
  Report Type: Report from Study
  Country: IE (occurrence: IE)
  Receive Date: 20190306
  Receipt Date: 20250320
  Transmission Date: 20250409
  Serious: Yes (Death)
  Sender: AUROBINDO
  Company Number: IE-AUROBINDO-AUR-APL-2018-028602

PATIENT
  Age: 24 Year
  Sex: Female

DRUGS (18)
  1. MEROPENEM [Interacting]
     Active Substance: MEROPENEM
     Indication: Sepsis
     Route: 065
  2. PIPERACILLIN AND TAZOBACTAM [Suspect]
     Active Substance: PIPERACILLIN SODIUM\TAZOBACTAM SODIUM
     Indication: Device related sepsis
     Route: 065
  3. VALPROATE SODIUM [Interacting]
     Active Substance: VALPROATE SODIUM
     Indication: Status epilepticus
     Route: 040
  4. VALPROATE SODIUM [Interacting]
     Active Substance: VALPROATE SODIUM
     Dosage: 1800 MILLIGRAM, ONCE A DAY, 600 MG, THREE TIMES A DAY (TDS)
     Route: 040
  5. VALPROATE SODIUM [Interacting]
     Active Substance: VALPROATE SODIUM
  6. CASPOFUNGIN [Suspect]
     Active Substance: CASPOFUNGIN
     Indication: Device related sepsis
     Route: 065
  7. VANCOMYCIN [Suspect]
     Active Substance: VANCOMYCIN
     Indication: Device related sepsis
     Route: 065
  8. THIOPENTAL SODIUM [Concomitant]
     Active Substance: THIOPENTAL SODIUM
     Indication: Seizure
     Route: 065
  9. MIDAZOLAM [Interacting]
     Active Substance: MIDAZOLAM
     Indication: Seizure
     Route: 042
  10. MIDAZOLAM [Interacting]
     Active Substance: MIDAZOLAM
     Indication: Status epilepticus
  11. LEVETIRACETAM [Concomitant]
     Active Substance: LEVETIRACETAM
     Indication: Status epilepticus
     Route: 065
  12. LEVETIRACETAM [Concomitant]
     Active Substance: LEVETIRACETAM
     Dosage: 1500 MG, BID
     Route: 065
  13. LACOSAMIDE [Concomitant]
     Active Substance: LACOSAMIDE
     Indication: Status epilepticus
     Dosage: 200 MILLIGRAM, ONCE A DAY, 100 MG, TWICE A DAY (BD)
     Route: 065
  14. LACOSAMIDE [Concomitant]
     Active Substance: LACOSAMIDE
     Dosage: 100 MILLIGRAM,12 PER HOUR
     Route: 065
  15. AZTREONAM [Concomitant]
     Active Substance: AZTREONAM
     Indication: Sepsis
     Route: 065
  16. PROPOFOL [Concomitant]
     Active Substance: PROPOFOL
     Indication: Seizure
     Route: 042
  17. PHENYTOIN [Concomitant]
     Active Substance: PHENYTOIN
     Indication: Status epilepticus
     Dosage: 300 MILLIGRAM, ONCE A DAY, 100 MG, THREE TIMES A DAY (TDS)
     Route: 065
  18. PHENYTOIN [Concomitant]
     Active Substance: PHENYTOIN
     Dosage: 100 MILLIGRAM, 3 TIMES A DAY
     Route: 065

REACTIONS (3)
  - Drug ineffective [Fatal]
  - Drug interaction [Not Recovered/Not Resolved]
  - Drug level decreased [Not Recovered/Not Resolved]
